FAERS Safety Report 15885991 (Version 1)
Quarter: 2019Q1

REPORT INFORMATION
  Report Type: Spontaneous
  Country: MX (occurrence: MX)
  Receive Date: 20190129
  Receipt Date: 20190129
  Transmission Date: 20190417
  Serious: Yes (Other)
  Sender: FDA-Public Use
  Company Number: MX-JNJFOC-20190135052

PATIENT
  Age: 80 Year
  Sex: Female
  Weight: 51 kg

DRUGS (4)
  1. NORFENON [Concomitant]
     Route: 065
  2. FORTE V [Concomitant]
     Route: 048
     Dates: start: 2017
  3. NORFENON [Concomitant]
     Route: 065
     Dates: start: 2017
  4. XARELTO [Suspect]
     Active Substance: RIVAROXABAN
     Indication: PRODUCT USED FOR UNKNOWN INDICATION
     Route: 048
     Dates: start: 20180102

REACTIONS (3)
  - Rash macular [Not Recovered/Not Resolved]
  - Gingival bleeding [Not Recovered/Not Resolved]
  - Urticaria [Not Recovered/Not Resolved]

NARRATIVE: CASE EVENT DATE: 20180622
